FAERS Safety Report 10171213 (Version 1)
Quarter: 2014Q2

REPORT INFORMATION
  Report Type: Spontaneous
  Country: US (occurrence: US)
  Receive Date: 20140514
  Receipt Date: 20140514
  Transmission Date: 20141212
  Serious: Yes (Congenital Anomaly, Other)
  Sender: FDA-Public Use
  Company Number: US-SA-2014SA059199

PATIENT
  Sex: Female

DRUGS (1)
  1. CLOMID [Suspect]
     Indication: MATERNAL EXPOSURE TIMING UNSPECIFIED
     Route: 064

REACTIONS (8)
  - Cardiac murmur [Unknown]
  - Foetal exposure during pregnancy [Unknown]
  - Hypothyroidism [Unknown]
  - Emotional distress [Unknown]
  - Emotional distress [Unknown]
  - Multiple injuries [Unknown]
  - Ventricular septal defect [Unknown]
  - Tachycardia [Unknown]
